FAERS Safety Report 16232741 (Version 1)
Quarter: 2019Q2

REPORT INFORMATION
  Report Type: Spontaneous
  Country: FR (occurrence: FR)
  Receive Date: 20190424
  Receipt Date: 20190424
  Transmission Date: 20190711
  Serious: Yes (Hospitalization)
  Sender: FDA-Public Use
  Company Number: FR-BAYER-2019-079589

PATIENT
  Age: 39 Year
  Sex: Male

DRUGS (1)
  1. NAPROXENE BAYER 220 MG [Suspect]
     Active Substance: NAPROXEN
     Indication: BACK PAIN
     Dosage: UNK
     Route: 048

REACTIONS (1)
  - Perforated ulcer [Recovering/Resolving]

NARRATIVE: CASE EVENT DATE: 20190226
